FAERS Safety Report 7427189-4 (Version None)
Quarter: 2011Q2

REPORT INFORMATION
  Report Type: 
  Country: None (occurrence: None)
  Receive Date: 20110420
  Receipt Date: 20090205
  Transmission Date: 20111010
  Serious: Yes (Other)
  Sender: FDA-Public Use
  Company Number: DE-GENENTECH-316927

PATIENT
  Age: 88 Year

DRUGS (1)
  1. LUCENTIS [Suspect]
     Indication: MACULAR DEGENERATION
     Dosage: UNK
     Route: 031
     Dates: start: 20070107

REACTIONS (6)
  - VENOUS INSUFFICIENCY [None]
  - VISUAL ACUITY REDUCED [None]
  - GLAUCOMA [None]
  - WEIGHT DECREASED [None]
  - MUSCULAR WEAKNESS [None]
  - LACRIMATION INCREASED [None]
